FAERS Safety Report 20143572 (Version 1)
Quarter: 2021Q4

REPORT INFORMATION
  Report Type: Spontaneous
  Country: US (occurrence: US)
  Receive Date: 20211203
  Receipt Date: 20211203
  Transmission Date: 20220303
  Serious: Yes (Other)
  Sender: FDA-Public Use
  Company Number: US-LUPIN PHARMACEUTICALS INC.-2021-23524

PATIENT
  Age: 64 Year
  Sex: Male

DRUGS (11)
  1. CALCIPOTRIENE [Suspect]
     Active Substance: CALCIPOTRIENE
     Indication: Benign familial pemphigus
     Dosage: UNK
     Route: 065
  2. GLYCOPYRROLATE [Suspect]
     Active Substance: GLYCOPYRROLATE
     Indication: Benign familial pemphigus
     Dosage: UNK
     Route: 048
  3. KETOCONAZOLE [Suspect]
     Active Substance: KETOCONAZOLE
     Indication: Benign familial pemphigus
     Dosage: UNK
     Route: 061
  4. TACROLIMUS [Suspect]
     Active Substance: TACROLIMUS
     Indication: Benign familial pemphigus
     Dosage: UNK
     Route: 065
  5. DESONIDE [Suspect]
     Active Substance: DESONIDE
     Indication: Benign familial pemphigus
     Dosage: UNK
     Route: 065
  6. CYCLOSPORINE [Suspect]
     Active Substance: CYCLOSPORINE
     Indication: Benign familial pemphigus
     Dosage: UNK
     Route: 061
  7. ALUMINUM CHLORIDE [Suspect]
     Active Substance: ALUMINUM CHLORIDE
     Indication: Benign familial pemphigus
     Dosage: UNK
     Route: 065
  8. GLYCOPYRRONIUM TOSYLATE [Concomitant]
     Active Substance: GLYCOPYRRONIUM TOSYLATE
     Indication: Benign familial pemphigus
     Dosage: UNK, CLOTH
     Route: 061
  9. TRIAMCINOLONE [Concomitant]
     Active Substance: TRIAMCINOLONE
     Indication: Benign familial pemphigus
     Dosage: UNK
     Route: 065
  10. OXYBUTYNIN [Concomitant]
     Active Substance: OXYBUTYNIN
     Indication: Micturition urgency
     Dosage: UNK
     Route: 065
  11. CLINDAMYCIN [Concomitant]
     Active Substance: CLINDAMYCIN
     Indication: Benign familial pemphigus
     Dosage: UNK
     Route: 065

REACTIONS (2)
  - Drug ineffective for unapproved indication [Unknown]
  - Off label use [Unknown]
